FAERS Safety Report 5465892-6 (Version None)
Quarter: 2007Q3

REPORT INFORMATION
  Report Type: 
  Country: None (occurrence: None)
  Receive Date: 20070924
  Receipt Date: 20070914
  Transmission Date: 20080115
  Serious: Yes (Hospitalization)
  Sender: FDA-Public Use
  Company Number: JP-ASTRAZENECA-2007AP05824

PATIENT
  Age: 30 Year
  Sex: Male

DRUGS (4)
  1. CRESTOR [Suspect]
     Indication: LIPIDS ABNORMAL
     Route: 048
  2. DESMOPRESSIN ACETATE [Concomitant]
  3. PRAVASTATIN [Concomitant]
  4. PRAVASTATIN [Concomitant]

REACTIONS (1)
  - ANURIA [None]
